FAERS Safety Report 8401687-9 (Version None)
Quarter: 2012Q2

REPORT INFORMATION
  Report Type: 
  Country: None (occurrence: None)
  Receive Date: 20120529
  Receipt Date: 20100216
  Transmission Date: 20120825
  Serious: Yes (Hospitalization)
  Sender: FDA-Public Use
  Company Number: 008274

PATIENT
  Age: 86 Year
  Sex: Male
  Weight: 42 kg

DRUGS (4)
  1. PLETAL [Suspect]
     Indication: CEREBRAL INFARCTION
     Dosage: 100 MG, BID, ORAL
     Route: 048
     Dates: start: 20090715, end: 20091029
  2. MAGNESIUM OXIDE (MAGNESIUM OXIDE) [Concomitant]
  3. TOLEDOMIN (MILNACIPRAN HYDROCHLORIDE) [Concomitant]
  4. DOGMATYL (SULPIRIDE) [Concomitant]

REACTIONS (4)
  - DECREASED APPETITE [None]
  - INSOMNIA [None]
  - DEPRESSION [None]
  - PNEUMONIA ASPIRATION [None]
